FAERS Safety Report 14538257 (Version 1)
Quarter: 2018Q1

REPORT INFORMATION
  Report Type: Spontaneous
  Country: CH (occurrence: CH)
  Receive Date: 20180216
  Receipt Date: 20180216
  Transmission Date: 20180509
  Serious: Yes (Life-Threatening, Hospitalization)
  Sender: FDA-Public Use
  Company Number: CH-ORION CORPORATION ORION PHARMA-18_00002945

PATIENT
  Age: 83 Year
  Sex: Female

DRUGS (6)
  1. METHOTREXATE. [Suspect]
     Active Substance: METHOTREXATE
     Indication: RHEUMATOID ARTHRITIS
     Dosage: ON MONDAYS
     Route: 048
     Dates: start: 201704, end: 20180130
  2. ACIDUM FOLICIM [Concomitant]
     Route: 048
  3. TRIMIPRAMIN [Concomitant]
     Active Substance: TRIMIPRAMINE MALEATE
     Route: 048
  4. LIPANTHYL [Concomitant]
     Active Substance: FENOFIBRATE
     Indication: DYSLIPIDAEMIA
     Route: 048
  5. SINTROM [Concomitant]
     Active Substance: ACENOCOUMAROL
     Indication: PULMONARY EMBOLISM
     Route: 048
     Dates: end: 20180130
  6. BILOL [Concomitant]
     Active Substance: BISOPROLOL
     Indication: HYPERTENSION
     Route: 048

REACTIONS (14)
  - Drug administration error [Unknown]
  - Oesophagitis [Not Recovered/Not Resolved]
  - Drug prescribing error [Unknown]
  - Pancytopenia [Recovering/Resolving]
  - Agranulocytosis [Recovered/Resolved]
  - Diarrhoea [Recovered/Resolved]
  - Acute kidney injury [Recovered/Resolved]
  - Pneumonia [Not Recovered/Not Resolved]
  - Human metapneumovirus test positive [Unknown]
  - Toxicity to various agents [Unknown]
  - Sinusitis [Unknown]
  - Stomatitis [Not Recovered/Not Resolved]
  - Acute respiratory distress syndrome [Not Recovered/Not Resolved]
  - Odynophagia [Unknown]

NARRATIVE: CASE EVENT DATE: 20180130
